FAERS Safety Report 9145678 (Version 2)
Quarter: 2013Q2

REPORT INFORMATION
  Report Type: Spontaneous
  Country: ZA (occurrence: ZA)
  Receive Date: 20130307
  Receipt Date: 20130419
  Transmission Date: 20140414
  Serious: Yes (Death, Hospitalization)
  Sender: FDA-Public Use
  Company Number: ZA-BRISTOL-MYERS SQUIBB COMPANY-17423948

PATIENT
  Age: 69 Year
  Sex: Male

DRUGS (13)
  1. ORENCIA [Suspect]
     Indication: RHEUMATOID ARTHRITIS
     Dosage: NO OF INF:2
     Route: 042
     Dates: start: 20121206
  2. METHOTREXATE [Suspect]
     Indication: RHEUMATOID ARTHRITIS
     Route: 048
     Dates: start: 201101
  3. PREDNISONE [Suspect]
     Indication: RHEUMATOID ARTHRITIS
     Route: 048
     Dates: start: 201101
  4. ENBREL [Suspect]
     Indication: RHEUMATOID ARTHRITIS
     Dates: start: 201204, end: 20120505
  5. MABTHERA [Concomitant]
     Indication: RHEUMATOID ARTHRITIS
     Dosage: 1ST-02JUL12,2:16JUL12
     Route: 042
     Dates: start: 20120702
  6. COXFLAM [Concomitant]
     Route: 048
     Dates: end: 201206
  7. ECOTRIN [Concomitant]
     Route: 048
     Dates: start: 2001
  8. FUROSEMIDE [Concomitant]
     Route: 048
  9. SLOW-K [Concomitant]
     Route: 048
  10. CONCOR [Concomitant]
     Route: 048
  11. SIMVASTATIN [Concomitant]
     Route: 048
  12. COVERSYL PLUS [Concomitant]
     Route: 048
  13. FOLIC ACID [Concomitant]
     Route: 048
     Dates: start: 201101

REACTIONS (3)
  - Multi-organ failure [Fatal]
  - Pneumocystis jirovecii pneumonia [Fatal]
  - Pneumonia cytomegaloviral [Fatal]
